FAERS Safety Report 7204563-2 (Version None)
Quarter: 2010Q4

REPORT INFORMATION
  Report Type: 
  Country: None (occurrence: None)
  Receive Date: 20101230
  Receipt Date: 20101221
  Transmission Date: 20110411
  Serious: Yes (Other)
  Sender: FDA-Public Use
  Company Number: IN-JNJFOC-20101207874

PATIENT

DRUGS (4)
  1. INFLIXIMAB, RECOMBINANT [Suspect]
     Indication: SPONDYLITIS
     Dosage: WEEK 0, 2, 6
     Route: 042
  2. INFLIXIMAB, RECOMBINANT [Suspect]
     Dosage: 4 MONTHS OF THERAPY TOTAL
     Route: 042
  3. METHOTREXATE [Concomitant]
  4. NSAID'S [Concomitant]

REACTIONS (1)
  - EXTRAPULMONARY TUBERCULOSIS [None]
